FAERS Safety Report 8130721 (Version 11)
Quarter: 2013Q4

REPORT INFORMATION
  Report Type: Report from Study
  Country: US (occurrence: US)
  Receive Date: 20110912
  Receipt Date: 20131015
  Transmission Date: 20140711
  Serious: Yes (Hospitalization, Other)
  Sender: FDA-Public Use
  Company Number: US-ELI_LILLY_AND_COMPANY-US201108009476

PATIENT
  Age: 71 Year
  Sex: Female

DRUGS (16)
  1. TERIPARATIDE [Suspect]
     Indication: OSTEOPOROSIS
     Dosage: 20 UG, QD
     Route: 065
     Dates: start: 20110826, end: 20110826
  2. TERIPARATIDE [Suspect]
     Indication: SENILE OSTEOPOROSIS
     Dosage: 20 UG, QD
     Route: 065
  3. TERIPARATIDE [Suspect]
     Dosage: 20 UG, QD
     Route: 065
  4. TERIPARATIDE [Suspect]
     Dosage: 20 UG, QD
     Route: 065
  5. TERIPARATIDE [Suspect]
     Dosage: 20 UG, QD
     Route: 065
  6. TERIPARATIDE [Suspect]
     Dosage: 20 UG, QD
     Route: 065
     Dates: end: 20121220
  7. TERIPARATIDE [Suspect]
     Dosage: 20 UG, QD
     Route: 065
     Dates: start: 201301
  8. NORCO [Concomitant]
  9. GLYCOLAX [Concomitant]
  10. FLEXERIL [Concomitant]
  11. VALIUM [Concomitant]
  12. NORVASC [Concomitant]
  13. ATENOLOL [Concomitant]
  14. CELEXA [Concomitant]
  15. CLONAZEPAM [Concomitant]
  16. PROZAC [Concomitant]

REACTIONS (26)
  - Confusional state [Unknown]
  - Back pain [Unknown]
  - Fall [Recovered/Resolved]
  - Pneumonia [Unknown]
  - Influenza [Unknown]
  - Blood pressure increased [Unknown]
  - Frequent bowel movements [Unknown]
  - Abnormal dreams [Unknown]
  - Alcohol intolerance [Unknown]
  - Fall [Unknown]
  - Feeling abnormal [Unknown]
  - Fall [Recovered/Resolved]
  - Spinal disorder [Unknown]
  - Pain in extremity [Unknown]
  - Musculoskeletal stiffness [Unknown]
  - Trigger finger [Unknown]
  - Gastrointestinal disorder [Unknown]
  - Dizziness [Unknown]
  - Headache [Unknown]
  - Injection site bruising [Unknown]
  - Rash [Recovered/Resolved]
  - Scoliosis [Not Recovered/Not Resolved]
  - Malaise [Unknown]
  - Asthenia [Unknown]
  - Gait disturbance [Unknown]
  - Alcohol use [Unknown]
